FAERS Safety Report 6422724-7 (Version None)
Quarter: 2009Q4

REPORT INFORMATION
  Report Type: 
  Country: None (occurrence: None)
  Receive Date: 20091102
  Receipt Date: 20091023
  Transmission Date: 20100525
  Serious: Yes (Other)
  Sender: FDA-Public Use
  Company Number: JP-JNJFOC-20091007945

PATIENT

DRUGS (6)
  1. RISPERDAL [Suspect]
     Route: 048
  2. RISPERDAL [Suspect]
     Route: 048
  3. RISPERDAL [Suspect]
     Route: 048
  4. RISPERDAL [Suspect]
     Indication: HALLUCINATION, AUDITORY
     Dosage: APPROXIMATELY 3 YEARS AGO (IN 2006)
     Route: 048
  5. PAXIL [Concomitant]
     Route: 048
  6. MIRTAZAPINE [Concomitant]
     Route: 048

REACTIONS (9)
  - ABNORMAL BEHAVIOUR [None]
  - AKATHISIA [None]
  - DECREASED APPETITE [None]
  - DEPRESSION [None]
  - INCREASED APPETITE [None]
  - PARAESTHESIA [None]
  - PYREXIA [None]
  - SOMNOLENCE [None]
  - WEIGHT DECREASED [None]
